FAERS Safety Report 5226339-8 (Version None)
Quarter: 2007Q1

REPORT INFORMATION
  Report Type: 
  Country: None (occurrence: None)
  Receive Date: 20070129
  Receipt Date: 20070112
  Transmission Date: 20070707
  Serious: Yes (Hospitalization)
  Sender: FDA-Public Use
  Company Number: ALK_0105_2007

PATIENT
  Sex: Male

DRUGS (1)
  1. VIVITROL [Suspect]
     Indication: ALCOHOLISM
     Dosage: 380 MG EVERY4WKS; IM
     Route: 030
     Dates: start: 20061101

REACTIONS (2)
  - OVERDOSE [None]
  - TREATMENT NONCOMPLIANCE [None]
